FAERS Safety Report 15061543 (Version 1)
Quarter: 2018Q2

REPORT INFORMATION
  Report Type: Spontaneous
  Country: AL (occurrence: AL)
  Receive Date: 20180625
  Receipt Date: 20180625
  Transmission Date: 20180711
  Serious: Yes (Hospitalization)
  Sender: FDA-Public Use
  Company Number: AL-ANIPHARMA-2018-AL-000002

PATIENT
  Age: 70 Year
  Sex: Male

DRUGS (2)
  1. BICALUTAMIDE. [Suspect]
     Active Substance: BICALUTAMIDE
     Dosage: 50 MG DAILY
  2. GOSERELIN [Suspect]
     Active Substance: GOSERELIN
     Route: 051

REACTIONS (2)
  - Blood electrolytes abnormal [Unknown]
  - Torsade de pointes [Recovered/Resolved]
